FAERS Safety Report 7560847-X (Version None)
Quarter: 2011Q2

REPORT INFORMATION
  Report Type: 
  Country: None (occurrence: None)
  Receive Date: 20110621
  Receipt Date: 20110211
  Transmission Date: 20111010
  Serious: No
  Sender: FDA-Public Use
  Company Number: US-ASTRAZENECA-2011SE08294

PATIENT
  Sex: Female
  Weight: 72.6 kg

DRUGS (4)
  1. GABAPENTIN [Concomitant]
  2. ATACAND [Suspect]
     Route: 048
  3. SYNTHROID [Concomitant]
  4. ATACAND [Suspect]
     Indication: HYPERTENSION
     Route: 048

REACTIONS (3)
  - FATIGUE [None]
  - OEDEMA PERIPHERAL [None]
  - DRUG DOSE OMISSION [None]
